FAERS Safety Report 14008467 (Version 1)
Quarter: 2017Q3

REPORT INFORMATION
  Report Type: Spontaneous
  Country: TR (occurrence: TR)
  Receive Date: 20170925
  Receipt Date: 20170925
  Transmission Date: 20171128
  Serious: Yes (Death, Hospitalization, Other)
  Sender: FDA-Public Use
  Company Number: TR-JNJFOC-20170920442

PATIENT

DRUGS (4)
  1. AZATHIOPRINE. [Concomitant]
     Active Substance: AZATHIOPRINE
     Route: 065
  2. INFLIXIMAB, RECOMBINANT [Suspect]
     Active Substance: INFLIXIMAB
     Indication: AMYLOIDOSIS
     Route: 042
  3. ETANERCEPT [Suspect]
     Active Substance: ETANERCEPT
     Indication: AMYLOIDOSIS
     Route: 065
  4. METHOTREXATE. [Concomitant]
     Active Substance: METHOTREXATE
     Route: 065

REACTIONS (19)
  - Retinal vein thrombosis [Unknown]
  - Bacterial pyelonephritis [Unknown]
  - Off label use [Unknown]
  - Product use in unapproved indication [Unknown]
  - Sepsis [Fatal]
  - Neuropathy peripheral [Unknown]
  - Pneumonia [Fatal]
  - Anaphylactic reaction [Unknown]
  - Vena cava thrombosis [Unknown]
  - Subclavian vein thrombosis [Unknown]
  - Aspergilloma [Unknown]
  - Jugular vein thrombosis [Unknown]
  - Peripheral artery thrombosis [Unknown]
  - Lung adenocarcinoma [Unknown]
  - Subcutaneous abscess [Unknown]
  - End stage renal disease [Unknown]
  - Renal vein thrombosis [Unknown]
  - Tuberculosis [Unknown]
  - Vasculitis [Unknown]
